FAERS Safety Report 8252729-5 (Version None)
Quarter: 2012Q2

REPORT INFORMATION
  Report Type: 
  Country: None (occurrence: None)
  Receive Date: 20120402
  Receipt Date: 20111202
  Transmission Date: 20120825
  Serious: No
  Sender: FDA-Public Use
  Company Number: US-ABBOTT-11P-163-0881204-00

PATIENT
  Sex: Male
  Weight: 67.192 kg

DRUGS (5)
  1. ANDROGEL [Suspect]
     Indication: BLOOD TESTOSTERONE DECREASED
     Dosage: 4 PUMPS
     Route: 061
     Dates: start: 20111121, end: 20111125
  2. ANDROGEL [Suspect]
  3. LOREZAPAM [Concomitant]
     Indication: ANXIETY
     Route: 048
  4. ANDROGEL [Suspect]
     Indication: ASTHENIA
  5. MIRTAZAPINE [Concomitant]
     Indication: DEPRESSION
     Dosage: DAILY, AT BEDTIME

REACTIONS (2)
  - APPLICATION SITE RASH [None]
  - APPLICATION SITE PAIN [None]
